FAERS Safety Report 11936592 (Version 1)
Quarter: 2016Q1

REPORT INFORMATION
  Report Type: Spontaneous
  Country: DE (occurrence: DE)
  Receive Date: 20160121
  Receipt Date: 20160121
  Transmission Date: 20160526
  Serious: Yes (Other)
  Sender: FDA-Public Use
  Company Number: DE-PFIZER INC-2016026282

PATIENT
  Age: 49 Year
  Sex: Male
  Weight: 81 kg

DRUGS (2)
  1. CHAMPIX [Suspect]
     Active Substance: VARENICLINE TARTRATE
     Dosage: 1 MG, 2X/DAY
     Route: 048
     Dates: start: 201511, end: 20160110
  2. CHAMPIX [Suspect]
     Active Substance: VARENICLINE TARTRATE
     Indication: SMOKING CESSATION THERAPY
     Dosage: 0.5 MG, 2X/DAY
     Route: 048
     Dates: start: 20151115, end: 201511

REACTIONS (8)
  - Toothache [Recovering/Resolving]
  - Depressed mood [Unknown]
  - Arthralgia [Unknown]
  - Dyspnoea [Recovering/Resolving]
  - Pulmonary pain [Unknown]
  - Dry mouth [Unknown]
  - Myalgia [Unknown]
  - Bronchitis [Unknown]

NARRATIVE: CASE EVENT DATE: 201511
